FAERS Safety Report 14818067 (Version 2)
Quarter: 2018Q2

REPORT INFORMATION
  Report Type: Other
  Country: CA (occurrence: CA)
  Receive Date: 20180427
  Receipt Date: 20180530
  Transmission Date: 20180711
  Serious: Yes (Other)
  Sender: FDA-Public Use
  Company Number: CA-APOTEX-2018AP010943

PATIENT
  Age: 80 Year
  Sex: Female

DRUGS (3)
  1. FLUTICASONE. [Suspect]
     Active Substance: FLUTICASONE
     Indication: PRODUCT USED FOR UNKNOWN INDICATION
     Dosage: 250 ?G, UNK
     Route: 065
  2. TYLENOL WITH CODEINE [Concomitant]
     Active Substance: ACETAMINOPHEN\CODEINE PHOSPHATE
     Indication: PRODUCT USED FOR UNKNOWN INDICATION
     Route: 065
  3. XANAX [Concomitant]
     Active Substance: ALPRAZOLAM
     Indication: ANXIETY
     Route: 065

REACTIONS (5)
  - Asthenia [Unknown]
  - Feeling abnormal [Unknown]
  - Cellulitis [Unknown]
  - Palpitations [Unknown]
  - Drug ineffective [Unknown]
